FAERS Safety Report 14527526 (Version 1)
Quarter: 2018Q1

REPORT INFORMATION
  Report Type: Spontaneous
  Country: US (occurrence: US)
  Receive Date: 20180213
  Receipt Date: 20180213
  Transmission Date: 20180509
  Serious: Yes (Other)
  Sender: FDA-Public Use
  Company Number: US-PFIZER INC-2018034073

PATIENT
  Age: 68 Year
  Sex: Male
  Weight: 77.98 kg

DRUGS (3)
  1. LYRICA [Suspect]
     Active Substance: PREGABALIN
     Indication: BACK PAIN
     Dosage: 300 MG, 4X/DAY
     Route: 048
  2. CLONAZEPAM. [Concomitant]
     Active Substance: CLONAZEPAM
     Indication: SLEEP DISORDER
     Dosage: UNK
  3. TIZANIDINE. [Concomitant]
     Active Substance: TIZANIDINE
     Indication: SLEEP DISORDER
     Dosage: UNK

REACTIONS (14)
  - Intervertebral disc degeneration [Unknown]
  - Haemorrhage [Recovered/Resolved]
  - Appetite disorder [Unknown]
  - Overdose [Unknown]
  - Feeling abnormal [Unknown]
  - Body height decreased [Unknown]
  - Weight decreased [Unknown]
  - Scoliosis [Unknown]
  - Inflammation [Unknown]
  - Vision blurred [Recovered/Resolved]
  - Increased appetite [Recovered/Resolved]
  - Nervous system disorder [Unknown]
  - Pain [Unknown]
  - Weight increased [Recovered/Resolved]
